FAERS Safety Report 6386216-6 (Version None)
Quarter: 2009Q4

REPORT INFORMATION
  Report Type: 
  Country: None (occurrence: None)
  Receive Date: 20091002
  Receipt Date: 20090921
  Transmission Date: 20100525
  Serious: Yes (Hospitalization)
  Sender: FDA-Public Use
  Company Number: US-KINGPHARMUSA00001-K200901167

PATIENT
  Age: 30 Year
  Sex: Male

DRUGS (5)
  1. EPIPEN [Suspect]
     Indication: URTICARIA
     Dosage: UNK, SINGLE
     Route: 030
  2. EPIPEN [Suspect]
     Indication: WHEEZING
  3. DIPHENHYDRAMINE HCL [Concomitant]
     Indication: URTICARIA
     Dosage: 25 MG, PRN
  4. DIPHENHYDRAMINE HCL [Concomitant]
     Indication: WHEEZING
  5. PREDNISONE TAB [Concomitant]
     Indication: DERMATITIS
     Dosage: 10 MG, PRN

REACTIONS (6)
  - ARTERIOSPASM CORONARY [None]
  - CHEST PAIN [None]
  - DYSPNOEA [None]
  - HYPERHIDROSIS [None]
  - HYPOTENSION [None]
  - MYOCARDIAL INFARCTION [None]
